FAERS Safety Report 10178445 (Version 1)
Quarter: 2014Q2

REPORT INFORMATION
  Report Type: Spontaneous
  Country: KP (occurrence: KR)
  Receive Date: 20140519
  Receipt Date: 20140519
  Transmission Date: 20141212
  Serious: Yes (Hospitalization, Other)
  Sender: FDA-Public Use
  Company Number: KR-ACCORD-023258

PATIENT
  Age: 76 Year
  Sex: Female

DRUGS (3)
  1. FLUOROURACIL [Suspect]
     Indication: RECTOSIGMOID CANCER
     Dosage: INFUSED EVERY OTHER WEEK- FOLFOX
  2. OXALIPLATIN [Suspect]
     Indication: RECTOSIGMOID CANCER
     Dosage: INFUSED EVERY OTHER WEEK - FOLFOX.
  3. FOLINIC ACID [Suspect]
     Indication: RECTOSIGMOID CANCER
     Dosage: INFUSED EVERY OTHER WEEK - FOLFOX

REACTIONS (2)
  - Pulmonary embolism [Unknown]
  - Sarcoidosis [Recovered/Resolved]
